FAERS Safety Report 23488636 (Version 2)
Quarter: 2024Q1

REPORT INFORMATION
  Report Type: Spontaneous
  Country: US (occurrence: US)
  Receive Date: 20240206
  Receipt Date: 20240227
  Transmission Date: 20240409
  Serious: No
  Sender: FDA-Public Use
  Company Number: US-Teikoku Pharma USA-TPU2022-00497

PATIENT
  Age: 91 Year
  Sex: Male
  Weight: 74.84 kg

DRUGS (10)
  1. LIDOCAINE [Suspect]
     Active Substance: LIDOCAINE
  2. LIDOCAINE [Suspect]
     Active Substance: LIDOCAINE
     Indication: Back pain
     Route: 061
  3. LIDOCAINE [Suspect]
     Active Substance: LIDOCAINE
     Route: 061
  4. ESCITALOPRAM [Concomitant]
     Active Substance: ESCITALOPRAM OXALATE
  5. cancer drugs [Concomitant]
  6. TRAMADOL [Concomitant]
     Active Substance: TRAMADOL\TRAMADOL HYDROCHLORIDE
     Indication: Back pain
  7. HYDROCHLOROTHIAZIDE [Concomitant]
     Active Substance: HYDROCHLOROTHIAZIDE
  8. ATORVASTATIN [Concomitant]
     Active Substance: ATORVASTATIN
  9. CELEBREX [Concomitant]
     Active Substance: CELECOXIB
  10. AMLODIPINE BESYLATE [Concomitant]
     Active Substance: AMLODIPINE BESYLATE

REACTIONS (4)
  - Inappropriate schedule of product administration [Unknown]
  - Compression fracture [Not Recovered/Not Resolved]
  - Headache [Unknown]
  - Blood testosterone decreased [Unknown]

NARRATIVE: CASE EVENT DATE: 20220101
